FAERS Safety Report 24417938 (Version 1)
Quarter: 2024Q4

REPORT INFORMATION
  Report Type: Spontaneous
  Country: US (occurrence: US)
  Receive Date: 20241009
  Receipt Date: 20241009
  Transmission Date: 20250115
  Serious: No
  Sender: ELI LILLY AND CO
  Company Number: US-ELI_LILLY_AND_COMPANY-US202410004749

PATIENT
  Age: 61 Year
  Sex: Male

DRUGS (15)
  1. MOUNJARO [Interacting]
     Active Substance: TIRZEPATIDE
     Indication: Product used for unknown indication
     Dosage: 10 MG, UNKNOWN
     Route: 058
     Dates: start: 202407
  2. MOUNJARO [Interacting]
     Active Substance: TIRZEPATIDE
     Indication: Product used for unknown indication
     Dosage: 10 MG, UNKNOWN
     Route: 058
     Dates: start: 202407
  3. MOUNJARO [Interacting]
     Active Substance: TIRZEPATIDE
     Indication: Product used for unknown indication
     Dosage: 10 MG, UNKNOWN
     Route: 058
     Dates: start: 202407
  4. MOUNJARO [Interacting]
     Active Substance: TIRZEPATIDE
     Indication: Product used for unknown indication
     Dosage: 10 MG, UNKNOWN
     Route: 058
     Dates: start: 202407
  5. MOUNJARO [Interacting]
     Active Substance: TIRZEPATIDE
     Dosage: 10 MG, UNKNOWN
     Route: 058
  6. MOUNJARO [Interacting]
     Active Substance: TIRZEPATIDE
     Dosage: 10 MG, UNKNOWN
     Route: 058
  7. MOUNJARO [Interacting]
     Active Substance: TIRZEPATIDE
     Dosage: 10 MG, UNKNOWN
     Route: 058
  8. MOUNJARO [Interacting]
     Active Substance: TIRZEPATIDE
     Dosage: 10 MG, UNKNOWN
     Route: 058
  9. BERBERINE [Interacting]
     Active Substance: BERBERINE
     Indication: Blood glucose increased
     Dosage: UNK UNK, UNKNOWN
     Route: 065
  10. COENZYME Q10 [Interacting]
     Active Substance: DIETARY SUPPLEMENT\UBIDECARENONE
     Indication: Blood pressure management
     Dosage: UNK UNK, UNKNOWN
     Route: 065
  11. COENZYME Q10 [Interacting]
     Active Substance: DIETARY SUPPLEMENT\UBIDECARENONE
     Indication: Cardiac disorder
  12. GLUCOSAMINE [Interacting]
     Active Substance: GLUCOSAMINE
     Indication: Spinal stenosis
     Dosage: UNK UNK, UNKNOWN
     Route: 065
  13. CHONDROITIN [Interacting]
     Active Substance: CHONDROITIN
     Indication: Spinal stenosis
     Dosage: UNK UNK, UNKNOWN
     Route: 065
  14. GYMNEMA SYLVESTRE LEAF [Interacting]
     Active Substance: GYMNEMA SYLVESTRE LEAF
     Indication: Blood glucose increased
     Dosage: UNK UNK, UNKNOWN
     Route: 065
  15. HERBALS\WITHANIA SOMNIFERA ROOT [Interacting]
     Active Substance: HERBALS\WITHANIA SOMNIFERA ROOT
     Indication: Asthenia
     Dosage: UNK UNK, UNKNOWN
     Route: 065

REACTIONS (2)
  - Drug interaction [Unknown]
  - Drug ineffective [Unknown]
